FAERS Safety Report 17397720 (Version 1)
Quarter: 2020Q1

REPORT INFORMATION
  Report Type: Report from Study
  Country: IT (occurrence: IT)
  Receive Date: 20200210
  Receipt Date: 20200210
  Transmission Date: 20200409
  Serious: Yes (Death)
  Sender: FDA-Public Use
  Company Number: IT-BAYER-2020-017499

PATIENT
  Age: 80 Year

DRUGS (2)
  1. ALLOPURINOL. [Suspect]
     Active Substance: ALLOPURINOL
     Indication: GOUT
  2. CIPROFLOXACIN. [Suspect]
     Active Substance: CIPROFLOXACIN

REACTIONS (1)
  - Toxic epidermal necrolysis [Fatal]
